FAERS Safety Report 7315159-6 (Version None)
Quarter: 2011Q1

REPORT INFORMATION
  Report Type: 
  Country: None (occurrence: None)
  Receive Date: 20110225
  Receipt Date: 20110222
  Transmission Date: 20110831
  Serious: Yes (Death, Other)
  Sender: FDA-Public Use
  Company Number: CH-PFIZER INC-2010174646

PATIENT
  Age: 53 Year
  Sex: Female

DRUGS (12)
  1. PENICILLIN ^GRUNENTHAL^ [Concomitant]
     Dosage: UNK
     Dates: start: 20101019
  2. DIFLUCAN [Interacting]
     Indication: CANDIDIASIS
  3. TEMESTA [Concomitant]
  4. POTASSIUM CHLORIDE [Concomitant]
  5. DIFLUCAN [Suspect]
     Indication: DEVICE RELATED INFECTION
     Dosage: 400 MG, 1X/DAY
     Dates: start: 20101001
  6. MARCOUMAR [Concomitant]
  7. METOLAZONE [Concomitant]
  8. CORDARONE [Interacting]
     Indication: ATRIAL FIBRILLATION
     Dosage: 200 MG, 4X/DAY
     Route: 048
     Dates: start: 20101015, end: 20101024
  9. PANTOZOL [Concomitant]
  10. TORASEMIDE [Concomitant]
  11. GARAMYCIN [Concomitant]
     Dosage: UNK
     Dates: start: 20101023
  12. MAGNESIUM [Concomitant]

REACTIONS (3)
  - DRUG INTERACTION [None]
  - SUDDEN DEATH [None]
  - PNEUMOTHORAX [None]
